FAERS Safety Report 8890848 (Version 1)
Quarter: 2012Q4

REPORT INFORMATION
  Report Type: 
  Country: US (occurrence: US)
  Receive Date: 20121107
  Receipt Date: 20121107
  Transmission Date: 20130627
  Serious: Yes (Death)
  Sender: FDA-Public Use
  Company Number: US-ROCHE-1130727

PATIENT
  Age: 71 Year
  Sex: Female

DRUGS (18)
  1. HERCEPTIN [Suspect]
     Indication: BREAST CANCER
     Dosage: Loading dose 1M6 344 units
     Route: 042
     Dates: start: 19981103, end: 200005
  2. HERCEPTIN [Suspect]
     Route: 042
     Dates: start: 19991014
  3. HERCEPTIN [Suspect]
     Route: 042
     Dates: start: 20000331
  4. HERCEPTIN [Suspect]
     Route: 042
     Dates: start: 19990511
  5. CYTOXAN [Concomitant]
  6. METHOTREXATE [Concomitant]
  7. 5-FU [Concomitant]
  8. TAXOTERE [Concomitant]
     Route: 065
     Dates: start: 19991005
  9. TAXOTERE [Concomitant]
     Route: 065
  10. NAVELBINE [Concomitant]
     Route: 065
     Dates: start: 20000223
  11. NAVELBINE [Concomitant]
     Route: 065
     Dates: start: 20000331
  12. ADRIAMYCIN [Concomitant]
     Route: 065
     Dates: start: 20000518
  13. TYLENOL [Concomitant]
     Route: 048
     Dates: start: 19990319
  14. TYLENOL [Concomitant]
     Route: 065
     Dates: start: 19991119
  15. TYLENOL [Concomitant]
     Route: 048
     Dates: start: 19991124
  16. TYLENOL [Concomitant]
     Dosage: as required
     Route: 065
     Dates: start: 20000331
  17. KYTRIL [Concomitant]
     Route: 065
     Dates: start: 19991119
  18. KYTRIL [Concomitant]
     Route: 065
     Dates: start: 19991124

REACTIONS (14)
  - Pyrexia [Unknown]
  - Lethargy [Unknown]
  - Cough [Unknown]
  - Asthenia [Unknown]
  - Oral discomfort [Unknown]
  - Nausea [Unknown]
  - Constipation [Unknown]
  - Decreased appetite [Unknown]
  - Metastases to bone [Unknown]
  - Metastases to lung [Unknown]
  - Metastases to liver [Unknown]
  - Fatigue [Unknown]
  - Metastases to lung [Unknown]
  - Breast cancer [Fatal]
